FAERS Safety Report 9527648 (Version 1)
Quarter: 2013Q1

REPORT INFORMATION
  Report Type: Spontaneous
  Country: US (occurrence: None)
  Receive Date: 20130314
  Receipt Date: 20130314
  Transmission Date: 20140127
  Serious: No
  Sender: FDA-Public Use
  Company Number: 1211USA006319

PATIENT
  Age: 56 Year
  Sex: Male

DRUGS (4)
  1. PEGINTRON [Suspect]
     Indication: HEPATITIS C
     Route: 058
     Dates: start: 2012
  2. VICTRELIS (BOCEPREVIR) CAPSULE, 200MG [Suspect]
     Indication: HEPATITIS C
     Dates: start: 2012
  3. RIBAPAK (RIBAVIRIN) [Suspect]
  4. CIALIS (TADALAFIL) [Concomitant]

REACTIONS (2)
  - Influenza like illness [None]
  - Fatigue [None]
